FAERS Safety Report 9028935 (Version 1)
Quarter: 2013Q1

REPORT INFORMATION
  Report Type: Report from Study
  Country: US (occurrence: US)
  Receive Date: 20130124
  Receipt Date: 20130124
  Transmission Date: 20140127
  Serious: Yes (Other)
  Sender: FDA-Public Use
  Company Number: US-ABBOTT-13P-163-1038332-00

PATIENT
  Sex: Male

DRUGS (4)
  1. HUMIRA [Suspect]
     Indication: RHEUMATOID ARTHRITIS
     Dates: end: 20130115
  2. LISINOPRIL [Concomitant]
     Indication: HYPERTENSION
     Dosage: ONCE DAILY
  3. BACLOFEN [Concomitant]
     Indication: MUSCLE SPASMS
     Dosage: ONCE DAILY
  4. HYDROCODONE WITH IBUPROFEN [Concomitant]
     Indication: PAIN
     Dosage: 7.5/200MG

REACTIONS (7)
  - Cerebrospinal fluid leakage [Unknown]
  - Arteriovenous malformation [Not Recovered/Not Resolved]
  - Rheumatoid arthritis [Unknown]
  - Back pain [Unknown]
  - Muscle rupture [Unknown]
  - Headache [Unknown]
  - Headache [Unknown]
